FAERS Safety Report 25785807 (Version 1)
Quarter: 2025Q3

REPORT INFORMATION
  Report Type: Report from Study
  Country: US (occurrence: US)
  Receive Date: 20250910
  Receipt Date: 20250910
  Transmission Date: 20251020
  Serious: Yes (Other)
  Sender: RECORDATI
  Company Number: US-ORPHANEU-2025006373

PATIENT
  Age: 44 Year
  Sex: Male
  Weight: 77.388 kg

DRUGS (25)
  1. ISTURISA [Suspect]
     Active Substance: OSILODROSTAT PHOSPHATE
     Indication: Pituitary-dependent Cushing^s syndrome
     Dosage: 2 MG, BID (1 MG TABLET)
     Route: 048
     Dates: end: 20250805
  2. ISTURISA [Suspect]
     Active Substance: OSILODROSTAT PHOSPHATE
     Indication: Cushing^s syndrome
     Dosage: 1 MG, BID (TABLET)
     Route: 048
     Dates: start: 202508, end: 20250813
  3. ISTURISA [Suspect]
     Active Substance: OSILODROSTAT PHOSPHATE
     Dosage: 3 MG, BID (1 MG TABLET)
     Route: 048
     Dates: start: 202508, end: 20250815
  4. ISTURISA [Suspect]
     Active Substance: OSILODROSTAT PHOSPHATE
     Dosage: 5 MG, BID (5 MG TABLET)
     Route: 048
     Dates: start: 202508, end: 20250815
  5. ISTURISA [Suspect]
     Active Substance: OSILODROSTAT PHOSPHATE
     Dosage: 10 MG, BID (5 MG TABLET)
     Route: 048
     Dates: start: 202508, end: 20250830
  6. ISTURISA [Suspect]
     Active Substance: OSILODROSTAT PHOSPHATE
     Dosage: 15 MG, BID (5 MG TABLET)
     Route: 048
     Dates: start: 20250830
  7. AMLODIPINE BESYLATE [Concomitant]
     Active Substance: AMLODIPINE BESYLATE
     Indication: Product used for unknown indication
     Dosage: 5 MG, QD (TABLET)
     Route: 048
     Dates: start: 20250401
  8. CISPLATIN [Concomitant]
     Active Substance: CISPLATIN
     Indication: Product used for unknown indication
     Route: 042
     Dates: start: 20240721
  9. DOXORUBICIN HYDROCHLORIDE [Concomitant]
     Active Substance: DOXORUBICIN HYDROCHLORIDE
     Indication: Product used for unknown indication
     Route: 042
     Dates: start: 20240721
  10. ETOPOSIDE [Concomitant]
     Active Substance: ETOPOSIDE
     Indication: Product used for unknown indication
     Route: 042
     Dates: start: 20240721
  11. KETOCONAZOLE [Concomitant]
     Active Substance: KETOCONAZOLE
     Indication: Product used for unknown indication
     Dosage: 2 PERCENT, QD (EXTERNAL CREAM)
     Route: 061
     Dates: start: 20250701
  12. LACOSAMIDE [Concomitant]
     Active Substance: LACOSAMIDE
     Indication: Product used for unknown indication
     Dosage: 50 MG, QD (AT NIGHT) (TABLET)
     Route: 048
     Dates: start: 20250701
  13. LANTUS [Concomitant]
     Active Substance: INSULIN GLARGINE
     Indication: Product used for unknown indication
     Route: 058
     Dates: start: 20240721
  14. MITOTANE [Concomitant]
     Active Substance: MITOTANE
     Indication: Product used for unknown indication
     Dates: start: 20240721
  15. NORVASC [Concomitant]
     Active Substance: AMLODIPINE BESYLATE
     Indication: Product used for unknown indication
     Dosage: 5 MG, QD (TABLET)
     Route: 048
     Dates: start: 20240721
  16. NOVOLOG [Concomitant]
     Active Substance: INSULIN ASPART
     Indication: Product used for unknown indication
     Dates: start: 20240721
  17. NYSTATIN [Concomitant]
     Active Substance: NYSTATIN
     Indication: Product used for unknown indication
     Dosage: 100000 DOSAGE FORM, QD (EXTERNAL POWDER)
     Route: 061
     Dates: start: 20250701
  18. OLANZAPINE [Concomitant]
     Active Substance: OLANZAPINE
     Indication: Product used for unknown indication
     Dosage: 7.5 MG, QD (AT NIGHT) (TABLET)
     Route: 048
     Dates: start: 20250701
  19. POTASSIUM CHLORIDE [Concomitant]
     Active Substance: POTASSIUM CHLORIDE
     Indication: Product used for unknown indication
     Route: 048
     Dates: start: 20240721
  20. ROSUVASTATIN CALCIUM [Concomitant]
     Active Substance: ROSUVASTATIN CALCIUM
     Indication: Product used for unknown indication
     Dosage: 5 MG, QD (TABLET)
     Route: 048
     Dates: start: 20240721
  21. SERTRALINE HYDROCHLORIDE [Concomitant]
     Active Substance: SERTRALINE HYDROCHLORIDE
     Indication: Product used for unknown indication
     Dosage: 50 MG, QD (TABLET)
     Route: 048
     Dates: start: 20240721
  22. SPIRONOLACTONE [Concomitant]
     Active Substance: SPIRONOLACTONE
     Indication: Product used for unknown indication
     Dosage: 50 MG, QD (TABLET)
     Route: 048
     Dates: start: 20240721
  23. TELMISARTAN [Concomitant]
     Active Substance: TELMISARTAN
     Indication: Product used for unknown indication
     Dosage: 40 MG, QD (TABLET)
     Route: 048
     Dates: start: 20240721
  24. TRAZODONE HCL [Concomitant]
     Active Substance: TRAZODONE HYDROCHLORIDE
     Indication: Product used for unknown indication
     Route: 048
     Dates: start: 20240721
  25. ZYPREXA [Concomitant]
     Active Substance: OLANZAPINE
     Indication: Product used for unknown indication
     Dosage: 7.5 MG, QD (TABLET)
     Route: 048
     Dates: start: 20240721

REACTIONS (3)
  - Atrial fibrillation [Recovering/Resolving]
  - Spinal fracture [Unknown]
  - Osteoporosis [Unknown]

NARRATIVE: CASE EVENT DATE: 20250830
